FAERS Safety Report 6108669-0 (Version None)
Quarter: 2009Q1

REPORT INFORMATION
  Report Type: 
  Country: None (occurrence: None)
  Receive Date: 20090305
  Receipt Date: 20090218
  Transmission Date: 20090719
  Serious: Yes (Other)
  Sender: FDA-Public Use
  Company Number: 2009S1003001

PATIENT
  Age: 83 Year
  Sex: Male

DRUGS (2)
  1. BISOPROLOL FUMARATE [Suspect]
     Indication: ARRHYTHMIA
     Dosage: 5 MG;
     Dates: start: 20061201
  2. PROPAFENON (CON.) [Concomitant]

REACTIONS (2)
  - CATARACT [None]
  - VISION BLURRED [None]
